FAERS Safety Report 9332919 (Version 1)
Quarter: 2013Q2

REPORT INFORMATION
  Report Type: Spontaneous
  Country: NL (occurrence: NL)
  Receive Date: 20130606
  Receipt Date: 20130606
  Transmission Date: 20140414
  Serious: Yes (Other)
  Sender: FDA-Public Use
  Company Number: NL-PFIZER INC-2013166712

PATIENT
  Age: 17 Year
  Sex: Female
  Weight: 60 kg

DRUGS (1)
  1. ETHINYLESTRADIOL/LEVONORGESTREL [Suspect]
     Dosage: 0.02/0.1 MG
     Dates: start: 20120404, end: 20130228

REACTIONS (2)
  - Fear [Recovered/Resolved with Sequelae]
  - Depressed mood [Recovered/Resolved with Sequelae]
